FAERS Safety Report 16335999 (Version 1)
Quarter: 2019Q2

REPORT INFORMATION
  Report Type: Spontaneous
  Country: US (occurrence: US)
  Receive Date: 20190520
  Receipt Date: 20190520
  Transmission Date: 20190711
  Serious: Yes (Other)
  Sender: FDA-Public Use
  Company Number: None

PATIENT
  Age: 36 Year
  Sex: Female
  Weight: 79.38 kg

DRUGS (1)
  1. NEXPLANON [Suspect]
     Active Substance: ETONOGESTREL

REACTIONS (10)
  - Alopecia [None]
  - Somnolence [None]
  - Pain [None]
  - Endometriosis [None]
  - Burning sensation [None]
  - Haemorrhoids [None]
  - Weight increased [None]
  - Skin disorder [None]
  - Complication associated with device [None]
  - Gastrointestinal motility disorder [None]
